FAERS Safety Report 14846331 (Version 1)
Quarter: 2018Q2

REPORT INFORMATION
  Report Type: Spontaneous
  Country: US (occurrence: US)
  Receive Date: 20180419
  Receipt Date: 20180419
  Transmission Date: 20180711
  Serious: Yes (Hospitalization)
  Sender: FDA-Public Use
  Company Number: None

PATIENT
  Sex: Male

DRUGS (4)
  1. MESALAMINE 800MG [Concomitant]
     Active Substance: MESALAMINE
  2. REMICADE [Suspect]
     Active Substance: INFLIXIMAB
     Indication: COLITIS ULCERATIVE
     Dosage: 397 MG EVERY 8 WEEEKS; INTRAVENOUS?
     Route: 042
  3. PREDNISONE. [Concomitant]
     Active Substance: PREDNISONE
  4. MERCAPTOPURINE 50MG [Concomitant]

REACTIONS (1)
  - Deep vein thrombosis [None]
